FAERS Safety Report 16191291 (Version 1)
Quarter: 2019Q2

REPORT INFORMATION
  Report Type: Spontaneous
  Country: CN (occurrence: CN)
  Receive Date: 20190412
  Receipt Date: 20190412
  Transmission Date: 20190711
  Serious: Yes (Hospitalization)
  Sender: FDA-Public Use
  Company Number: CN-BIOTEST PHARMACEUTICALS CORPORATION-CN-2019ADM000006

PATIENT
  Age: 21 Year
  Sex: Male

DRUGS (2)
  1. GLYCYRRHIZIN                       /00467201/ [Concomitant]
     Indication: PRODUCT USED FOR UNKNOWN INDICATION
     Dosage: 160 MG, QD
  2. BIVIGAM [Suspect]
     Active Substance: HUMAN IMMUNOGLOBULIN G
     Indication: PARVOVIRUS B19 INFECTION
     Dosage: 0.4G/KG FOR 15 DAYS

REACTIONS (2)
  - Cytopenia [Recovered/Resolved]
  - Hepatocellular injury [Recovered/Resolved]
